FAERS Safety Report 12092719 (Version 1)
Quarter: 2016Q1

REPORT INFORMATION
  Report Type: Spontaneous
  Country: US (occurrence: None)
  Receive Date: 20160218
  Receipt Date: 20160218
  Transmission Date: 20160526
  Serious: Yes (Death)
  Sender: FDA-Public Use
  Company Number: None

PATIENT
  Age: 19 Year
  Sex: Male

DRUGS (2)
  1. TACROLIMUS 1MG ACCORD [Suspect]
     Active Substance: TACROLIMUS
     Indication: HEART TRANSPLANT
     Dosage: 1MG 8 CAPSULES TID ORAL
     Route: 048
     Dates: start: 20151120, end: 20160131
  2. MYCOPHENOLATE 250MG TEVA [Suspect]
     Active Substance: MYCOPHENOLIC ACID
     Indication: HEART TRANSPLANT
     Dosage: 250MG 1 AM 2 PM BID ORAL
     Route: 048
     Dates: start: 20151120, end: 20160131

REACTIONS (1)
  - Death [None]

NARRATIVE: CASE EVENT DATE: 20160131
